FAERS Safety Report 9611895 (Version 1)
Quarter: 2013Q4

REPORT INFORMATION
  Report Type: Report from Study
  Country: CA (occurrence: CA)
  Receive Date: 20131010
  Receipt Date: 20131010
  Transmission Date: 20140711
  Serious: Yes (Hospitalization)
  Sender: FDA-Public Use
  Company Number: CA-JNJFOC-20131003103

PATIENT
  Age: 62 Year
  Sex: Female
  Weight: 87 kg

DRUGS (10)
  1. REMICADE [Suspect]
     Indication: CROHN^S DISEASE
     Route: 042
     Dates: start: 20080506
  2. METFORMIN [Concomitant]
     Route: 065
  3. LASIX [Concomitant]
     Route: 065
  4. PRAVASTATIN [Concomitant]
     Route: 065
  5. VENTOLIN [Concomitant]
     Route: 065
  6. INSULIN [Concomitant]
     Route: 065
  7. FLUOXETINE [Concomitant]
     Route: 065
  8. ASPIRIN [Concomitant]
     Route: 065
  9. SPIRIVA [Concomitant]
     Route: 065
  10. ADVAIR [Concomitant]
     Route: 065

REACTIONS (1)
  - Chronic obstructive pulmonary disease [Unknown]
